FAERS Safety Report 11922979 (Version 3)
Quarter: 2016Q2

REPORT INFORMATION
  Report Type: Report from Study
  Country: CO (occurrence: CO)
  Receive Date: 20160116
  Receipt Date: 20160408
  Transmission Date: 20160815
  Serious: Yes (Death, Hospitalization, Other)
  Sender: FDA-Public Use
  Company Number: PHHY2016CO003736

PATIENT
  Sex: Male
  Weight: 50 kg

DRUGS (3)
  1. VOTRIENT [Suspect]
     Active Substance: PAZOPANIB HYDROCHLORIDE
     Indication: LUNG NEOPLASM MALIGNANT
  2. VOTRIENT [Suspect]
     Active Substance: PAZOPANIB HYDROCHLORIDE
     Indication: RENAL CANCER
     Dosage: 200 MG, QD
     Route: 048
     Dates: start: 20151129, end: 20151229
  3. VOTRIENT [Suspect]
     Active Substance: PAZOPANIB HYDROCHLORIDE
     Indication: SOFT TISSUE SARCOMA
     Dosage: 400 MG, QD
     Route: 048
     Dates: start: 20151109

REACTIONS (10)
  - Metastases to bone [Fatal]
  - Hiccups [Unknown]
  - General physical health deterioration [Unknown]
  - Decreased appetite [Unknown]
  - Asthenia [Unknown]
  - Metastases to kidney [Fatal]
  - Loss of consciousness [Unknown]
  - Movement disorder [Unknown]
  - Speech disorder [Unknown]
  - Metastases to lung [Fatal]
